FAERS Safety Report 13617357 (Version 1)
Quarter: 2017Q2

REPORT INFORMATION
  Report Type: Spontaneous
  Country: US (occurrence: US)
  Receive Date: 20170606
  Receipt Date: 20170606
  Transmission Date: 20170830
  Serious: No
  Sender: FDA-Public Use
  Company Number: US-SA-2017SA022370

PATIENT
  Age: 69 Year
  Sex: Male

DRUGS (2)
  1. SOLOSTAR [Concomitant]
     Active Substance: DEVICE
     Indication: TYPE 2 DIABETES MELLITUS
  2. LANTUS SOLOSTAR [Suspect]
     Active Substance: INSULIN GLARGINE
     Indication: TYPE 2 DIABETES MELLITUS
     Dosage: DOSE: IF HIS BLOOD SUGAR IS ^180 HE TAKES 25 UNITS, AND IF IT^S LESS THAN 100 IN THE MORNING
     Route: 065

REACTIONS (4)
  - Back disorder [Unknown]
  - Neuropathy peripheral [Unknown]
  - Product use issue [Unknown]
  - Blood glucose increased [Unknown]
